FAERS Safety Report 7285427-5 (Version None)
Quarter: 2011Q1

REPORT INFORMATION
  Report Type: 
  Country: None (occurrence: None)
  Receive Date: 20110210
  Receipt Date: 20101101
  Transmission Date: 20110831
  Serious: Yes (Other)
  Sender: FDA-Public Use
  Company Number: CA-BAYER-201039874NA

PATIENT
  Sex: Female

DRUGS (1)
  1. MIRENA [Suspect]
     Indication: PRODUCT USED FOR UNKNOWN INDICATION
     Dosage: FREQUENCY: CONTINUOUS
     Route: 015
     Dates: start: 20100801

REACTIONS (5)
  - ABNORMAL DREAMS [None]
  - DEPRESSION [None]
  - NERVOUSNESS [None]
  - AMNESIA [None]
  - POST PROCEDURAL HAEMORRHAGE [None]
